FAERS Safety Report 25483776 (Version 1)
Quarter: 2025Q2

REPORT INFORMATION
  Report Type: Spontaneous
  Country: US (occurrence: US)
  Receive Date: 20250626
  Receipt Date: 20250626
  Transmission Date: 20250716
  Serious: No
  Sender: BAYER HEALTHCARE PHARMACEUTICALS INC.
  Company Number: US-BAYER-2025A085204

PATIENT
  Sex: Female

DRUGS (3)
  1. KYLEENA [Suspect]
     Active Substance: LEVONORGESTREL
     Indication: Abnormal uterine bleeding
     Dosage: 17.5?G/DAY
     Route: 015
     Dates: start: 202310
  2. KYLEENA [Suspect]
     Active Substance: LEVONORGESTREL
     Indication: Vaginal haemorrhage
  3. KYLEENA [Suspect]
     Active Substance: LEVONORGESTREL
     Indication: Intrauterine contraception

REACTIONS (1)
  - Device expulsion [Recovered/Resolved]
